FAERS Safety Report 20808176 (Version 1)
Quarter: 2022Q2

REPORT INFORMATION
  Report Type: Spontaneous
  Country: US (occurrence: US)
  Receive Date: 20220510
  Receipt Date: 20220510
  Transmission Date: 20220721
  Serious: Yes (Hospitalization)
  Sender: FDA-Public Use
  Company Number: US-PTx-2021000045

PATIENT
  Age: 3 Year
  Sex: Male

DRUGS (1)
  1. LEUKINE [Suspect]
     Active Substance: SARGRAMOSTIM
     Indication: Myeloid leukaemia
     Dosage: 250 MCG PWD SDV/INJ 1^S, ONCE DAILY, INJECT 0.75ML UNDER THE SKIN
     Route: 058
     Dates: start: 20210701

REACTIONS (1)
  - Hospitalisation [Unknown]

NARRATIVE: CASE EVENT DATE: 20210712
